FAERS Safety Report 8416548-9 (Version None)
Quarter: 2012Q2

REPORT INFORMATION
  Report Type: 
  Country: None (occurrence: None)
  Receive Date: 20120606
  Receipt Date: 20120531
  Transmission Date: 20120825
  Serious: Yes (Hospitalization)
  Sender: FDA-Public Use
  Company Number: GB-GLAXOSMITHKLINE-B0805218A

PATIENT
  Sex: Male

DRUGS (1)
  1. MALARONE [Suspect]
     Indication: MALARIA PROPHYLAXIS
     Dosage: 1TAB PER DAY
     Route: 048
     Dates: start: 20120408, end: 20120529

REACTIONS (6)
  - MALARIA [None]
  - DIZZINESS [None]
  - MUSCLE SPASMS [None]
  - VOMITING [None]
  - DIARRHOEA [None]
  - HYPERHIDROSIS [None]
